FAERS Safety Report 14422602 (Version 1)
Quarter: 2018Q1

REPORT INFORMATION
  Report Type: Spontaneous
  Country: FR (occurrence: FR)
  Receive Date: 20180123
  Receipt Date: 20180123
  Transmission Date: 20180509
  Serious: Yes (Hospitalization, Other)
  Sender: FDA-Public Use
  Company Number: FR-BRISTOL-MYERS SQUIBB COMPANY-BMS-2018-003337

PATIENT
  Age: 67 Year
  Sex: Male
  Weight: 54 kg

DRUGS (1)
  1. OPDIVO [Suspect]
     Active Substance: NIVOLUMAB
     Indication: LUNG CARCINOMA CELL TYPE UNSPECIFIED STAGE IV
     Dosage: 165 MG, Q2WK
     Route: 042
     Dates: start: 20171004, end: 20171213

REACTIONS (1)
  - Amaurosis fugax [Not Recovered/Not Resolved]

NARRATIVE: CASE EVENT DATE: 20171214
